FAERS Safety Report 20114087 (Version 4)
Quarter: 2023Q1

REPORT INFORMATION
  Report Type: Spontaneous
  Country: US (occurrence: US)
  Receive Date: 20211125
  Receipt Date: 20230208
  Transmission Date: 20230417
  Serious: No
  Sender: FDA-Public Use
  Company Number: US-LUPIN PHARMACEUTICALS INC.-2021-22769

PATIENT
  Sex: Male

DRUGS (3)
  1. ALBUTEROL SULFATE [Suspect]
     Active Substance: ALBUTEROL SULFATE
     Indication: Sinusitis
     Dosage: UNK, PRN, UNK; 1 - 2 PUFFS EVERY 4 HOURS AS NEEDED
     Dates: start: 2021
  2. ALBUTEROL SULFATE [Suspect]
     Active Substance: ALBUTEROL SULFATE
     Dosage: UNK, PRN, UNK; 1 - 2 PUFFS EVERY 4 HOURS AS NEEDED
     Dates: start: 20211101
  3. ALBUTEROL SULFATE [Suspect]
     Active Substance: ALBUTEROL SULFATE
     Dosage: UNK, 2 PUFFS
     Dates: start: 20230108

REACTIONS (5)
  - Device delivery system issue [Unknown]
  - Device information output issue [Unknown]
  - Product substitution issue [Unknown]
  - Product use in unapproved indication [Unknown]
  - No adverse event [Unknown]

NARRATIVE: CASE EVENT DATE: 20211107
